FAERS Safety Report 7512755-8 (Version None)
Quarter: 2011Q2

REPORT INFORMATION
  Report Type: 
  Country: None (occurrence: None)
  Receive Date: 20110531
  Receipt Date: 20110520
  Transmission Date: 20111010
  Serious: Yes (Other)
  Sender: FDA-Public Use
  Company Number: A0908631A

PATIENT
  Age: 44 Year
  Sex: Female
  Weight: 90 kg

DRUGS (7)
  1. SYNTHROID [Concomitant]
     Indication: HYPOTHYROIDISM
  2. AMBIEN [Concomitant]
     Indication: INSOMNIA
  3. ALLEGRA [Concomitant]
     Indication: RHINITIS ALLERGIC
  4. ESTROGENIC SUBSTANCE [Concomitant]
     Indication: HORMONE THERAPY
  5. LAMICTAL [Suspect]
     Indication: DEPRESSION
     Route: 048
     Dates: start: 20070901, end: 20080601
  6. PROPRANOLOL [Concomitant]
     Indication: HYPERTENSION
  7. DARVOCET [Concomitant]
     Indication: ARTHRALGIA

REACTIONS (8)
  - PEMPHIGOID [None]
  - PRURITUS [None]
  - RASH MACULAR [None]
  - RASH VESICULAR [None]
  - ERYTHEMA [None]
  - SKIN EXFOLIATION [None]
  - STOMATITIS [None]
  - BLISTER [None]
